FAERS Safety Report 7988531-9 (Version None)
Quarter: 2011Q4

REPORT INFORMATION
  Report Type: 
  Country: None (occurrence: None)
  Receive Date: 20111218
  Receipt Date: 20111207
  Transmission Date: 20120403
  Serious: Yes (Other)
  Sender: FDA-Public Use
  Company Number: US-ASTRAZENECA-2011SE74341

PATIENT
  Sex: Female

DRUGS (2)
  1. PRILOSEC [Suspect]
     Route: 048
  2. NEXIUM [Suspect]
     Route: 048

REACTIONS (8)
  - PAIN [None]
  - GASTRIC PERFORATION [None]
  - COUGH [None]
  - ABDOMINAL PAIN UPPER [None]
  - SKIN DISCOLOURATION [None]
  - STREPTOCOCCAL INFECTION [None]
  - GASTROOESOPHAGEAL REFLUX DISEASE [None]
  - STRESS [None]
